FAERS Safety Report 6518977-7 (Version None)
Quarter: 2009Q4

REPORT INFORMATION
  Report Type: 
  Country: None (occurrence: None)
  Receive Date: 20091228
  Receipt Date: 20091222
  Transmission Date: 20100525
  Serious: Yes (Death, Life-Threatening)
  Sender: FDA-Public Use
  Company Number: FR-SANOFI-AVENTIS-2009SA010337

PATIENT
  Age: 76 Year
  Sex: Female
  Weight: 120 kg

DRUGS (8)
  1. LASILIX [Suspect]
     Indication: DRUG USE FOR UNKNOWN INDICATION
     Dates: end: 20090909
  2. COVERSYL /FRA/ [Suspect]
     Indication: DRUG USE FOR UNKNOWN INDICATION
     Route: 048
     Dates: end: 20090909
  3. PREVISCAN [Suspect]
     Indication: DRUG USE FOR UNKNOWN INDICATION
     Route: 048
     Dates: end: 20090909
  4. CRESTOR [Suspect]
     Indication: DRUG USE FOR UNKNOWN INDICATION
     Route: 048
     Dates: end: 20090909
  5. BISOPROLOL FUMARATE [Suspect]
     Indication: DRUG USE FOR UNKNOWN INDICATION
     Route: 048
     Dates: end: 20090909
  6. ALLOPURINOL [Suspect]
     Indication: DRUG USE FOR UNKNOWN INDICATION
     Route: 048
     Dates: end: 20090909
  7. NITROGLYCERIN [Suspect]
     Indication: DRUG USE FOR UNKNOWN INDICATION
     Route: 062
     Dates: end: 20090909
  8. METFORMIN HYDROCHLORIDE/PIOGLITAZONE HYDROCHLORIDE [Suspect]
     Route: 048
     Dates: end: 20090909

REACTIONS (2)
  - HYPERKALAEMIA [None]
  - RENAL FAILURE ACUTE [None]
